FAERS Safety Report 17413039 (Version 1)
Quarter: 2020Q1

REPORT INFORMATION
  Report Type: Spontaneous
  Country: US (occurrence: US)
  Receive Date: 20200212
  Receipt Date: 20200212
  Transmission Date: 20200409
  Serious: Yes (Disabling, Other)
  Sender: FDA-Public Use
  Company Number: None

PATIENT
  Sex: Female
  Weight: 54 kg

DRUGS (1)
  1. MAGNEVIST [Suspect]
     Active Substance: GADOPENTETATE DIMEGLUMINE
     Indication: MAGNETIC RESONANCE IMAGING
     Route: 042
     Dates: start: 20160416, end: 20181218

REACTIONS (9)
  - Confusional state [None]
  - Depression [None]
  - Gadolinium deposition disease [None]
  - Dizziness [None]
  - Amnesia [None]
  - Feeling abnormal [None]
  - Insomnia [None]
  - Bone pain [None]
  - Anxiety [None]
